FAERS Safety Report 19771165 (Version 2)
Quarter: 2021Q3

REPORT INFORMATION
  Report Type: Spontaneous
  Country: US (occurrence: US)
  Receive Date: 20210831
  Receipt Date: 20210831
  Transmission Date: 20211014
  Serious: No
  Sender: FDA-Public Use
  Company Number: US-SA-2018SA118303

PATIENT
  Age: 66 Year
  Sex: Male

DRUGS (1)
  1. AUBAGIO [Suspect]
     Active Substance: TERIFLUNOMIDE
     Indication: MULTIPLE SCLEROSIS
     Dosage: 14 MG,QD
     Route: 048
     Dates: start: 20180105

REACTIONS (5)
  - Spinal stenosis [Not Recovered/Not Resolved]
  - Pain in extremity [Unknown]
  - Muscle spasticity [Unknown]
  - Hypoaesthesia [Unknown]
  - Asthenia [Unknown]

NARRATIVE: CASE EVENT DATE: 202105
